FAERS Safety Report 7198173-3 (Version None)
Quarter: 2010Q4

REPORT INFORMATION
  Report Type: 
  Country: None (occurrence: None)
  Receive Date: 20101227
  Receipt Date: 20101213
  Transmission Date: 20110411
  Serious: Yes (Disabling)
  Sender: FDA-Public Use
  Company Number: PHHY2010DE10154

PATIENT
  Sex: Male
  Weight: 92 kg

DRUGS (6)
  1. CLOZAPINE [Suspect]
     Indication: SCHIZOPHRENIA, PARANOID TYPE
     Dosage: 12.5-400 MG/DAY
     Route: 048
     Dates: start: 20080501, end: 20081001
  2. CLOZAPINE [Suspect]
     Dosage: 400 MG/ DAY
     Route: 048
     Dates: start: 20081001, end: 20090201
  3. CLOZAPINE [Suspect]
     Dosage: 425-475 MG/DAY
     Route: 048
     Dates: start: 20090201, end: 20091201
  4. CLOZAPINE [Suspect]
     Dosage: 400 MG/ DAY
     Route: 048
     Dates: start: 20091201, end: 20100401
  5. CLOZAPINE [Suspect]
     Dosage: 300 MG/DAY
     Route: 048
     Dates: start: 20100401, end: 20100605
  6. TIAPRIDEX [Concomitant]
     Dosage: 300 MG/ DAY
     Route: 048
     Dates: start: 20090901, end: 20091201

REACTIONS (5)
  - DIABETES MELLITUS [None]
  - DYSPHAGIA [None]
  - GLUCOSE TOLERANCE IMPAIRED [None]
  - TARDIVE DYSKINESIA [None]
  - WEIGHT INCREASED [None]
